FAERS Safety Report 21677340 (Version 1)
Quarter: 2022Q4

REPORT INFORMATION
  Report Type: Report from Study
  Country: EG (occurrence: EG)
  Receive Date: 20221203
  Receipt Date: 20221203
  Transmission Date: 20230113
  Serious: Yes (Hospitalization, Other)
  Sender: FDA-Public Use
  Company Number: EG-002147023-NVSC2022EG278034

PATIENT
  Sex: Female

DRUGS (6)
  1. GILENYA [Suspect]
     Active Substance: FINGOLIMOD HYDROCHLORIDE
     Indication: Multiple sclerosis
     Dosage: 1 DOSAGE FORM, QD (STARTED: 4 TO 5 YEARS AGO AND STOPPED: AFTER 4 TO 5 MONTHS FROM THE BEGINNING ON
     Route: 048
  2. NEUROVIT [Concomitant]
     Indication: Vitamin supplementation
     Dosage: 1-2 DOSAGE FORM, QD (STARTED: 4 TO 5 YEARS AGO) (IN INTERMITTENT MANNER)
     Route: 048
  3. CYANOCOBALAMIN [Concomitant]
     Active Substance: CYANOCOBALAMIN
     Indication: Vitamin supplementation
     Dosage: ONE AMP EVERY 3 DAYS (FORMULATION: AMPULE) (STARTED: 4 TO 5 YEARS AGO)
     Route: 065
  4. OMEGA [Concomitant]
     Indication: Vitamin supplementation
     Dosage: 1 DOSAGE FORM, QD (STARTED: 4 TO 5 YEARS AGO)  (IN INTERMITTENT MANNER)
     Route: 048
  5. BENFOTIAMINE\CYANOCOBALAMIN\PYRIDOXINE HYDROCHLORIDE [Concomitant]
     Active Substance: BENFOTIAMINE\CYANOCOBALAMIN\PYRIDOXINE HYDROCHLORIDE
     Indication: Vitamin supplementation
     Dosage: 1 DOSAGE FORM, QD (STARTED: 4 TO 5 YEARS AGO AND STOPPED AFTER 4 TO 5 MONTHS FROM THE BEGINNING OF G
     Route: 048
  6. OSTEOCARE [Concomitant]
     Active Substance: CALCIUM\CHOLECALCIFEROL\MAGNESIUM\ZINC
     Indication: Vitamin supplementation
     Dosage: 2 DOSAGE FORM, QD (STARTED: 4 TO 5 YEARS AGO AND STOPPED AFTER 4 TO 5 MONTHS FROM THE BEGINNING OF G
     Route: 048

REACTIONS (18)
  - Multiple sclerosis relapse [Recovered/Resolved]
  - Urinary retention [Recovered/Resolved]
  - Visual impairment [Not Recovered/Not Resolved]
  - Hepatic enzyme increased [Unknown]
  - Eye oedema [Not Recovered/Not Resolved]
  - Urinary incontinence [Not Recovered/Not Resolved]
  - Haemoglobin decreased [Recovering/Resolving]
  - Eye disorder [Not Recovered/Not Resolved]
  - Movement disorder [Not Recovered/Not Resolved]
  - Bone pain [Recovered/Resolved]
  - Premature menopause [Unknown]
  - Muscle spasms [Recovered/Resolved]
  - Nasopharyngitis [Unknown]
  - Back pain [Recovered/Resolved]
  - Headache [Recovered/Resolved]
  - Arthralgia [Recovered/Resolved]
  - Arthralgia [Not Recovered/Not Resolved]
  - Drug ineffective [Unknown]
